FAERS Safety Report 5634309-0 (Version None)
Quarter: 2008Q1

REPORT INFORMATION
  Report Type: 
  Country: None (occurrence: None)
  Receive Date: 20080131
  Receipt Date: 20070409
  Transmission Date: 20080703
  Serious: Yes (Other)
  Sender: FDA-Public Use
  Company Number: 2007BH003447

PATIENT
  Age: 61 Year
  Sex: Male

DRUGS (13)
  1. DIANEAL [Suspect]
     Indication: RENAL FAILURE CHRONIC
     Dosage: IP
     Route: 033
     Dates: start: 20040101
  2. CIPRO [Concomitant]
  3. ASPIRIN [Concomitant]
  4. PEPCID [Concomitant]
  5. ACTOS [Concomitant]
  6. LEVOTHYROXINE SODIUM [Concomitant]
  7. GLIPIZIDE [Concomitant]
  8. VYTORIN [Concomitant]
  9. COLACE [Concomitant]
  10. RENAGEL [Concomitant]
  11. COREG [Concomitant]
  12. EPOGEN [Concomitant]
  13. HYDROCODONE BITARTRATE [Concomitant]

REACTIONS (2)
  - MEDICAL DEVICE COMPLICATION [None]
  - PERITONITIS [None]
